FAERS Safety Report 6348356-7 (Version None)
Quarter: 2009Q3

REPORT INFORMATION
  Report Type: 
  Country: None (occurrence: None)
  Receive Date: 20090908
  Receipt Date: 20090825
  Transmission Date: 20100115
  Serious: Yes (Hospitalization)
  Sender: FDA-Public Use
  Company Number: 2009PV037499

PATIENT
  Age: 79 Year
  Sex: Male
  Weight: 84.8226 kg

DRUGS (6)
  1. SYMLIN [Suspect]
     Indication: TYPE 2 DIABETES MELLITUS
     Dosage: 120 UNITS;BID;SC
     Route: 058
     Dates: start: 20080229
  2. LIPITOR [Concomitant]
  3. NOVOLOG [Concomitant]
  4. AMLODIPINE [Concomitant]
  5. RAMIPRIL [Concomitant]
  6. PREV MEDS = UNKNOWN [Concomitant]

REACTIONS (6)
  - ADENOCARCINOMA PANCREAS [None]
  - BILE DUCT OBSTRUCTION [None]
  - DIARRHOEA [None]
  - JAUNDICE [None]
  - PANCREATITIS [None]
  - WEIGHT DECREASED [None]
